FAERS Safety Report 25031603 (Version 2)
Quarter: 2025Q1

REPORT INFORMATION
  Report Type: Spontaneous
  Country: US (occurrence: US)
  Receive Date: 20250303
  Receipt Date: 20250314
  Transmission Date: 20250409
  Serious: Yes (Hospitalization)
  Sender: SANDOZ
  Company Number: US-002147023-NVSC2020US145796

PATIENT
  Age: 4 Year
  Sex: Male

DRUGS (4)
  1. IMATINIB [Interacting]
     Active Substance: IMATINIB
     Indication: Acute lymphocytic leukaemia
     Route: 048
     Dates: start: 201607
  2. IMATINIB [Interacting]
     Active Substance: IMATINIB
     Indication: Philadelphia chromosome positive
  3. METHOTREXATE [Interacting]
     Active Substance: METHOTREXATE
     Indication: Acute lymphocytic leukaemia
     Route: 042
  4. METHOTREXATE [Interacting]
     Active Substance: METHOTREXATE
     Indication: Philadelphia chromosome positive

REACTIONS (7)
  - Mucosal inflammation [Recovered/Resolved]
  - Acute kidney injury [Recovered/Resolved]
  - Neutropenia [Recovered/Resolved]
  - Thrombocytopenia [Recovered/Resolved]
  - Oedema peripheral [Recovered/Resolved]
  - Drug clearance decreased [Recovered/Resolved]
  - Drug interaction [Unknown]

NARRATIVE: CASE EVENT DATE: 20160901
